FAERS Safety Report 8886968 (Version 1)
Quarter: 2012Q4

REPORT INFORMATION
  Report Type: 
  Country: CN (occurrence: CN)
  Receive Date: 20121105
  Receipt Date: 20121105
  Transmission Date: 20130627
  Serious: Yes (Other)
  Sender: FDA-Public Use
  Company Number: CN-BRISTOL-MYERS SQUIBB COMPANY-17067935

PATIENT
  Age: 40 Year
  Sex: Male

DRUGS (2)
  1. BARACLUDE [Suspect]
     Route: 048
     Dates: start: 20120822
  2. URSODEOXYCHOLIC ACID [Concomitant]

REACTIONS (4)
  - Jaundice [Unknown]
  - Chest pain [Unknown]
  - Acne [Unknown]
  - Abdominal discomfort [Unknown]
